FAERS Safety Report 12582019 (Version 1)
Quarter: 2016Q3

REPORT INFORMATION
  Report Type: Spontaneous
  Country: US (occurrence: US)
  Receive Date: 20160722
  Receipt Date: 20160722
  Transmission Date: 20161109
  Serious: Yes (Hospitalization)
  Sender: FDA-Public Use
  Company Number: US-ROCHE-1798463

PATIENT
  Age: 39 Year
  Sex: Female

DRUGS (11)
  1. LATUDA [Concomitant]
     Active Substance: LURASIDONE HYDROCHLORIDE
     Indication: ATTENTION DEFICIT/HYPERACTIVITY DISORDER
  2. KLONOPIN [Suspect]
     Active Substance: CLONAZEPAM
     Indication: ANXIETY
     Dosage: FOR 15 YEARS
     Route: 065
  3. RITALIN [Suspect]
     Active Substance: METHYLPHENIDATE HYDROCHLORIDE
     Indication: PSORIATIC ARTHROPATHY
     Dosage: 15 YEARS
     Route: 065
     Dates: end: 201603
  4. RITALIN [Suspect]
     Active Substance: METHYLPHENIDATE HYDROCHLORIDE
     Route: 065
     Dates: start: 201603
  5. ATIVAN [Concomitant]
     Active Substance: LORAZEPAM
  6. LATUDA [Concomitant]
     Active Substance: LURASIDONE HYDROCHLORIDE
     Indication: BIPOLAR DISORDER
  7. PRAZOSIN [Concomitant]
     Active Substance: PRAZOSIN
     Indication: POST-TRAUMATIC STRESS DISORDER
  8. HUMIRA [Suspect]
     Active Substance: ADALIMUMAB
     Indication: PSORIATIC ARTHROPATHY
     Dosage: 40 MG/0.8 ML (40 MILLIGRAMS), SOLUTION FOR INJECTION
     Route: 058
     Dates: start: 2015, end: 2016
  9. HUMIRA [Suspect]
     Active Substance: ADALIMUMAB
     Indication: ATTENTION DEFICIT/HYPERACTIVITY DISORDER
     Dosage: 400 MG/0.8 ML (40 MILLIGRAMS), SOLUTION FOR INJECTION
     Route: 058
  10. LATUDA [Concomitant]
     Active Substance: LURASIDONE HYDROCHLORIDE
     Indication: ANXIETY
  11. LAMICTAL [Suspect]
     Active Substance: LAMOTRIGINE
     Indication: BIPOLAR DISORDER
     Route: 065
     Dates: end: 201603

REACTIONS (3)
  - Confusional state [Recovered/Resolved]
  - Injection site bruising [Recovered/Resolved]
  - Loss of consciousness [Recovered/Resolved]

NARRATIVE: CASE EVENT DATE: 2015
